FAERS Safety Report 7853550-X (Version None)
Quarter: 2011Q4

REPORT INFORMATION
  Report Type: 
  Country: None (occurrence: None)
  Receive Date: 20111026
  Receipt Date: 20111021
  Transmission Date: 20120403
  Serious: Yes (Other)
  Sender: FDA-Public Use
  Company Number: SE-SANOFI-AVENTIS-2011SA061691

PATIENT
  Age: 78 Year
  Sex: Female
  Weight: 63 kg

DRUGS (9)
  1. METOPROLOL TARTRATE [Concomitant]
     Dates: start: 20100610
  2. ASPIRIN [Concomitant]
     Dates: start: 20100610
  3. BLINDED THERAPY [Suspect]
     Indication: ACUTE CORONARY SYNDROME
     Route: 065
     Dates: start: 20110822, end: 20110912
  4. OMEPRAZOLE [Concomitant]
     Dates: start: 20100610
  5. SIMVASTATIN [Concomitant]
     Dates: start: 20100610
  6. METOPROLOL TARTRATE [Concomitant]
  7. RAMIPRIL [Concomitant]
     Dates: start: 20100610
  8. CLOPIDOGREL BISULFATE [Suspect]
     Route: 065
     Dates: start: 20110822, end: 20110912
  9. RAMIPRIL [Concomitant]
     Dosage: 1.25 2X2

REACTIONS (1)
  - EOSINOPHILIA [None]
